FAERS Safety Report 7103899-3 (Version None)
Quarter: 2010Q4

REPORT INFORMATION
  Report Type: 
  Country: None (occurrence: None)
  Receive Date: 20101115
  Receipt Date: 20101111
  Transmission Date: 20110411
  Serious: Yes (Death)
  Sender: FDA-Public Use
  Company Number: PHHY2010JP59718

PATIENT
  Sex: Male

DRUGS (15)
  1. EXJADE [Suspect]
     Indication: IRON OVERLOAD
     Dosage: 500 MG DAILY
     Route: 048
     Dates: start: 20080709, end: 20100526
  2. NEORAL [Concomitant]
     Indication: APLASTIC ANAEMIA
     Dosage: 220 MG
     Route: 048
     Dates: start: 20040405
  3. NEORAL [Concomitant]
     Dosage: 200 MG
     Route: 048
     Dates: end: 20100526
  4. FOIPAN [Concomitant]
     Dosage: 300 MG
     Route: 048
     Dates: start: 20050422, end: 20100526
  5. SYAKUYAKUKANZOTO [Concomitant]
     Dosage: 02 G
     Route: 048
     Dates: start: 20050909, end: 20100526
  6. THYRADIN [Concomitant]
     Dosage: 50 UG
     Route: 048
     Dates: start: 20060824, end: 20100526
  7. LASIX [Concomitant]
     Dosage: 20 MG
     Route: 048
     Dates: start: 20040405, end: 20100526
  8. TAKEPRON [Concomitant]
     Dosage: 150 MG
     Route: 048
     Dates: start: 20070808, end: 20100526
  9. TOUGHMAC E [Concomitant]
     Dosage: 03 DF
     Route: 048
     Dates: start: 20060511, end: 20100526
  10. VITANEURIN [Concomitant]
     Dosage: 03 DF
     Route: 048
     Dates: start: 20060615, end: 20100526
  11. SANMOL [Concomitant]
     Dosage: 30 ML
     Route: 048
     Dates: start: 20040430, end: 20090109
  12. RIZE [Concomitant]
     Dosage: 15 MG
     Route: 048
     Dates: start: 20051118
  13. RIZE [Concomitant]
     Dosage: 05 MG
     Route: 048
  14. RIZE [Concomitant]
     Dosage: 15 MG
     Route: 048
     Dates: end: 20100526
  15. FLUNASE [Concomitant]
     Dosage: UNK
     Dates: start: 20100303, end: 20100526

REACTIONS (1)
  - DEATH [None]
